FAERS Safety Report 10057945 (Version 1)
Quarter: 2014Q2

REPORT INFORMATION
  Report Type: Spontaneous
  Country: GB (occurrence: None)
  Receive Date: 20140402
  Receipt Date: 20140402
  Transmission Date: 20141212
  Serious: Yes (Other)
  Sender: FDA-Public Use
  Company Number: AUR-APL-2014-03694

PATIENT
  Age: 22 Year
  Sex: Male
  Weight: 145 kg

DRUGS (3)
  1. AMLODIPINE (AMLODIPINE) [Suspect]
     Indication: PRODUCT USED FOR UNKNOWN INDICATION
     Dates: start: 20140304
  2. CETIRIZINE (CETIRIZINE) [Concomitant]
  3. ORLISTAT (ORLISTAT) [Concomitant]

REACTIONS (2)
  - Urticaria [None]
  - Swollen tongue [None]
